FAERS Safety Report 12463435 (Version 2)
Quarter: 2016Q2

REPORT INFORMATION
  Report Type: Spontaneous
  Country: JP (occurrence: JP)
  Receive Date: 20160614
  Receipt Date: 20160629
  Transmission Date: 20160815
  Serious: Yes (Hospitalization)
  Sender: FDA-Public Use
  Company Number: JP-ROCHE-1774356

PATIENT
  Age: 76 Year
  Sex: Male

DRUGS (9)
  1. SIFROL [Concomitant]
     Active Substance: PRAMIPEXOLE
     Indication: PARKINSON^S DISEASE
     Route: 065
  2. CABASER [Concomitant]
     Active Substance: CABERGOLINE
     Indication: PARKINSON^S DISEASE
     Route: 065
  3. LUCENTIS [Suspect]
     Active Substance: RANIBIZUMAB
     Dosage: INJECTED IN THE LEFT EYE
     Route: 050
     Dates: start: 20160414, end: 20160414
  4. MADOPAR [Concomitant]
     Active Substance: BENSERAZIDE HYDROCHLORIDE\LEVODOPA
     Indication: PARKINSON^S DISEASE
     Route: 048
  5. LUCENTIS [Suspect]
     Active Substance: RANIBIZUMAB
     Indication: RETINAL VEIN OCCLUSION
     Dosage: INJECTED IN THE LEFT EYE
     Route: 050
     Dates: start: 20150715
  6. LUCENTIS [Suspect]
     Active Substance: RANIBIZUMAB
     Dosage: INJECTED IN THE LEFT EYE
     Route: 050
     Dates: start: 20151008
  7. LUCENTIS [Suspect]
     Active Substance: RANIBIZUMAB
     Dosage: INJECTED IN THE LEFT EYE
     Route: 050
     Dates: start: 20160114
  8. BOTOX [Concomitant]
     Active Substance: ONABOTULINUMTOXINA
     Indication: PRODUCT USED FOR UNKNOWN INDICATION
     Route: 065
  9. BARACLUDE [Concomitant]
     Active Substance: ENTECAVIR
     Indication: PRODUCT USED FOR UNKNOWN INDICATION
     Route: 065

REACTIONS (1)
  - Cerebral haemorrhage [Unknown]

NARRATIVE: CASE EVENT DATE: 20160511
